FAERS Safety Report 14388364 (Version 2)
Quarter: 2018Q2

REPORT INFORMATION
  Report Type: Spontaneous
  Country: US (occurrence: US)
  Receive Date: 20180115
  Receipt Date: 20180611
  Transmission Date: 20180711
  Serious: Yes (Other)
  Sender: FDA-Public Use
  Company Number: US-SA-2017SA203826

PATIENT
  Age: 36 Year
  Sex: Female
  Weight: 69.39 kg

DRUGS (4)
  1. NEOSAR [Concomitant]
     Active Substance: CYCLOPHOSPHAMIDE
     Indication: PRODUCT USED FOR UNKNOWN INDICATION
  2. ADRIAMYCIN [DOXORUBICIN] [Concomitant]
     Indication: PRODUCT USED FOR UNKNOWN INDICATION
  3. TAXOTERE [Suspect]
     Active Substance: DOCETAXEL
     Indication: BREAST CANCER FEMALE
     Dosage: 70 MG,QW
     Route: 051
     Dates: start: 20060909, end: 20060909
  4. TAXOTERE [Suspect]
     Active Substance: DOCETAXEL
     Dosage: 70 MG,QW
     Route: 051
     Dates: start: 20070406, end: 20070406

REACTIONS (1)
  - Alopecia [Not Recovered/Not Resolved]
